FAERS Safety Report 6019258-0 (Version None)
Quarter: 2008Q4

REPORT INFORMATION
  Report Type: 
  Country: None (occurrence: None)
  Receive Date: 20081224
  Receipt Date: 20081215
  Transmission Date: 20090506
  Serious: Yes (Hospitalization)
  Sender: FDA-Public Use
  Company Number: US-PFIZER INC-2008154500

PATIENT
  Sex: Male
  Weight: 61.224 kg

DRUGS (3)
  1. DILANTIN [Suspect]
     Indication: GRAND MAL CONVULSION
     Dosage: 600 MG, 2X/DAY
  2. CARBAMAZEPINE [Concomitant]
     Dosage: UNK
  3. KEPPRA [Concomitant]
     Dosage: UNK

REACTIONS (1)
  - ANTICONVULSANT DRUG LEVEL INCREASED [None]
